FAERS Safety Report 8443207-9 (Version None)
Quarter: 2012Q2

REPORT INFORMATION
  Report Type: 
  Country: None (occurrence: None)
  Receive Date: 20120617
  Receipt Date: 20120606
  Transmission Date: 20120825
  Serious: Yes (Hospitalization)
  Sender: FDA-Public Use
  Company Number: US-VERTEX PHARMACEUTICALS INC.-AE-2012-006542

PATIENT
  Sex: Male
  Weight: 118.95 kg

DRUGS (16)
  1. RIBAVIRIN [Concomitant]
     Indication: HEPATITIS C
     Route: 048
     Dates: start: 20120416
  2. RIBAVIRIN [Concomitant]
  3. LINSIOPRIL/HCTZ [Concomitant]
     Indication: HYPERTENSION
     Route: 048
  4. ASPIRIN [Concomitant]
     Route: 048
  5. PRAVASTATIN [Concomitant]
     Indication: BLOOD CHOLESTEROL
     Route: 048
  6. ATARAX [Concomitant]
     Indication: PRURITUS
     Route: 048
  7. PEGASYS [Concomitant]
     Indication: HEPATITIS C
     Route: 058
     Dates: start: 20120416, end: 20120430
  8. GABAPENTIN [Concomitant]
     Indication: NEUROPATHY PERIPHERAL
     Route: 048
  9. VITAMIN B-12 [Concomitant]
     Route: 048
  10. INCIVEK [Suspect]
     Route: 048
  11. AVELOX [Concomitant]
     Indication: RESPIRATORY TRACT INFECTION
     Route: 048
  12. LYRICA [Concomitant]
     Indication: NEUROPATHY PERIPHERAL
     Route: 048
  13. PEGASYS [Concomitant]
  14. INCIVEK [Suspect]
     Indication: HEPATITIS C
     Route: 048
     Dates: start: 20120416, end: 20120501
  15. FLOMAX [Concomitant]
     Route: 048
  16. METFORMIN HCL [Concomitant]
     Indication: DIABETES MELLITUS
     Route: 048

REACTIONS (1)
  - PNEUMONIA [None]
